FAERS Safety Report 22016562 (Version 13)
Quarter: 2025Q2

REPORT INFORMATION
  Report Type: Report from Study
  Country: US (occurrence: US)
  Receive Date: 20230221
  Receipt Date: 20250507
  Transmission Date: 20250717
  Serious: Yes (Death, Hospitalization, Other)
  Sender: TAKEDA
  Company Number: US-TAKEDA-2023TUS016682

PATIENT
  Age: 79 Year
  Sex: Female
  Weight: 72 kg

DRUGS (38)
  1. HUMAN IMMUNOGLOBULIN G [Suspect]
     Active Substance: HUMAN IMMUNOGLOBULIN G
     Indication: Immunodeficiency common variable
     Dosage: 80 GRAM, Q4WEEKS
     Dates: start: 20230103
  2. HUMAN IMMUNOGLOBULIN G [Suspect]
     Active Substance: HUMAN IMMUNOGLOBULIN G
     Dosage: 60 GRAM, Q4WEEKS
  3. ACETAMINOPHEN [Concomitant]
     Active Substance: ACETAMINOPHEN
  4. EPINEPHRINE [Concomitant]
     Active Substance: EPINEPHRINE
  5. METFORMIN HYDROCHLORIDE [Concomitant]
     Active Substance: METFORMIN HYDROCHLORIDE
  6. NASACORT [Concomitant]
     Active Substance: TRIAMCINOLONE ACETONIDE
  7. VITAMIN C [Concomitant]
     Active Substance: ASCORBIC ACID
  8. ONDANSETRON [Concomitant]
     Active Substance: ONDANSETRON
  9. ADVAIR HFA [Concomitant]
     Active Substance: FLUTICASONE PROPIONATE\SALMETEROL XINAFOATE
  10. SPIRIVA [Concomitant]
     Active Substance: TIOTROPIUM BROMIDE MONOHYDRATE
  11. PULMICORT FLEXHALER [Concomitant]
     Active Substance: BUDESONIDE
  12. POTASSIUM CHLORIDE [Concomitant]
     Active Substance: POTASSIUM CHLORIDE
  13. XARELTO [Concomitant]
     Active Substance: RIVAROXABAN
  14. SODIUM CHLORIDE [Concomitant]
     Active Substance: SODIUM CHLORIDE
  15. HEPARIN [Concomitant]
     Active Substance: HEPARIN SODIUM
  16. BUPROPION [Concomitant]
     Active Substance: BUPROPION
  17. SERTRALINE HYDROCHLORIDE [Concomitant]
     Active Substance: SERTRALINE HYDROCHLORIDE
  18. LANTUS SOLOSTAR [Concomitant]
     Active Substance: INSULIN GLARGINE
  19. PULMICORT TURBUHALER [Concomitant]
     Active Substance: BUDESONIDE
  20. VITAMIN D3 [Concomitant]
     Active Substance: CHOLECALCIFEROL
  21. B active [Concomitant]
  22. CALCIUM\VITAMIN D [Concomitant]
     Active Substance: CALCIUM\VITAMIN D
  23. ACIPHEX [Concomitant]
     Active Substance: RABEPRAZOLE SODIUM
  24. LEVOTHYROXINE SODIUM [Concomitant]
     Active Substance: LEVOTHYROXINE SODIUM
  25. HYALURONIC ACID [Concomitant]
     Active Substance: HYALURONIC ACID
  26. PROMETHAZINE HYDROCHLORIDE [Concomitant]
     Active Substance: PROMETHAZINE HYDROCHLORIDE
  27. OXYGEN [Concomitant]
     Active Substance: OXYGEN
  28. MONTELUKAST SODIUM [Concomitant]
     Active Substance: MONTELUKAST SODIUM
  29. Lmx [Concomitant]
  30. DIPHENHYDRAMINE [Concomitant]
     Active Substance: DIPHENHYDRAMINE
  31. DIPHENHYDRAMINE HYDROCHLORIDE [Concomitant]
     Active Substance: DIPHENHYDRAMINE HYDROCHLORIDE
  32. DILTIAZEM HYDROCHLORIDE [Concomitant]
     Active Substance: DILTIAZEM HYDROCHLORIDE
  33. FUROSEMIDE [Concomitant]
     Active Substance: FUROSEMIDE
  34. ROSUVASTATIN CALCIUM [Concomitant]
     Active Substance: ROSUVASTATIN CALCIUM
  35. NOVOLOG [Concomitant]
     Active Substance: INSULIN ASPART
  36. METOPROLOL SUCCINATE [Concomitant]
     Active Substance: METOPROLOL SUCCINATE
  37. ELIQUIS [Concomitant]
     Active Substance: APIXABAN
  38. Nature^s bounty sleep3 [Concomitant]

REACTIONS (10)
  - Kidney infection [Fatal]
  - Renal failure [Fatal]
  - COVID-19 pneumonia [Unknown]
  - Pneumonia [Unknown]
  - Blood pressure decreased [Unknown]
  - Atrial fibrillation [Unknown]
  - Cardiac arrest [Unknown]
  - Gastrointestinal infection [Unknown]
  - Seasonal allergy [Unknown]
  - Skin laceration [Unknown]

NARRATIVE: CASE EVENT DATE: 20250220
